FAERS Safety Report 24793625 (Version 1)
Quarter: 2024Q4

REPORT INFORMATION
  Report Type: Spontaneous
  Country: US (occurrence: US)
  Receive Date: 20241231
  Receipt Date: 20241231
  Transmission Date: 20250115
  Serious: No
  Sender: TARO
  Company Number: US-TARO PHARMACEUTICALS USA INC.-2024TAR02249

PATIENT

DRUGS (2)
  1. HYDROCORTISONE [Suspect]
     Active Substance: HYDROCORTISONE
     Indication: Skin disorder
     Dosage: BID
     Route: 061
     Dates: start: 20241102, end: 20241103
  2. HYDROCORTISONE [Suspect]
     Active Substance: HYDROCORTISONE
     Indication: Pruritus

REACTIONS (3)
  - Condition aggravated [Recovering/Resolving]
  - Rash [Recovering/Resolving]
  - Drug ineffective [Unknown]
